FAERS Safety Report 4509272-6 (Version None)
Quarter: 2004Q4

REPORT INFORMATION
  Report Type: 
  Country: None (occurrence: None)
  Receive Date: 20041123
  Receipt Date: 20041115
  Transmission Date: 20050328
  Serious: Yes (Hospitalization)
  Sender: FDA-Public Use
  Company Number: US-MERCK-0411USA02531

PATIENT
  Age: 52 Year
  Sex: Female

DRUGS (2)
  1. VIOXX [Suspect]
     Indication: ARTHRITIS
     Route: 048
     Dates: start: 20000101, end: 20001201
  2. PAXIL [Concomitant]
     Route: 065

REACTIONS (3)
  - CHEST PAIN [None]
  - HEART RATE IRREGULAR [None]
  - SUICIDE ATTEMPT [None]
